FAERS Safety Report 4626506-8 (Version None)
Quarter: 2005Q2

REPORT INFORMATION
  Report Type: 
  Country: None (occurrence: None)
  Receive Date: 20050404
  Receipt Date: 20050330
  Transmission Date: 20051028
  Serious: Yes (Disabling)
  Sender: FDA-Public Use
  Company Number: US-MERCK-0503USA05180

PATIENT
  Age: 63 Year
  Sex: Female

DRUGS (4)
  1. ZETIA [Suspect]
     Indication: HYPERCHOLESTEROLAEMIA
     Route: 048
     Dates: start: 20041001, end: 20050319
  2. ZOLOFT [Concomitant]
     Route: 065
  3. BENICAR [Concomitant]
     Route: 065
  4. FISH OIL (UNSPECIFIED) [Concomitant]
     Route: 065

REACTIONS (1)
  - PERIARTHRITIS [None]
